FAERS Safety Report 5830736-7 (Version None)
Quarter: 2008Q3

REPORT INFORMATION
  Report Type: 
  Country: None (occurrence: None)
  Receive Date: 20080801
  Receipt Date: 20071031
  Transmission Date: 20090109
  Serious: Yes (Hospitalization)
  Sender: FDA-Public Use
  Company Number: US-BRISTOL-MYERS SQUIBB COMPANY-13965199

PATIENT
  Age: 70 Year
  Sex: Female

DRUGS (2)
  1. COUMADIN [Suspect]
     Indication: THROMBOSIS PROPHYLAXIS
     Dosage: WAS ON 10 MG FROM 3-OCT-2007 AND DECREASED TO 3MG ON 05-OCT-2007.
     Dates: start: 20071003
  2. ARIXTRA [Suspect]
     Indication: DEEP VEIN THROMBOSIS
     Route: 058
     Dates: start: 20071003, end: 20071007

REACTIONS (3)
  - HAEMATOCRIT DECREASED [None]
  - HAEMATOMA [None]
  - OEDEMA PERIPHERAL [None]
